FAERS Safety Report 10922770 (Version 1)
Quarter: 2015Q1

REPORT INFORMATION
  Report Type: Other
  Country: GB (occurrence: GB)
  Receive Date: 20150317
  Receipt Date: 20150317
  Transmission Date: 20150721
  Serious: Yes (Other)
  Sender: FDA-Public Use
  Company Number: GB-MYLANLABS-2015M1007093

PATIENT

DRUGS (3)
  1. ENTACAPONE. [Suspect]
     Active Substance: ENTACAPONE
     Indication: PARKINSON^S DISEASE
     Dosage: UNK (2 TABLETS)
     Route: 048
  2. ENTACAPONE. [Suspect]
     Active Substance: ENTACAPONE
     Dosage: UNK (3 TABLETS)
     Route: 048
  3. DUODOPA [Suspect]
     Active Substance: CARBIDOPA\LEVODOPA
     Indication: PARKINSON^S DISEASE
     Dosage: UNK, (FLOW RATE CONTINUOUS)
     Route: 050
     Dates: start: 20100628

REACTIONS (5)
  - Device issue [Unknown]
  - Device infusion issue [Unknown]
  - Dyskinesia [Unknown]
  - Akinesia [Unknown]
  - Device occlusion [Unknown]
